FAERS Safety Report 6539081-8 (Version None)
Quarter: 2010Q1

REPORT INFORMATION
  Report Type: 
  Country: None (occurrence: None)
  Receive Date: 20100115
  Receipt Date: 20100108
  Transmission Date: 20100710
  Serious: Yes (Hospitalization)
  Sender: FDA-Public Use
  Company Number: PHEH2009US17377

PATIENT
  Sex: Female
  Weight: 85.714 kg

DRUGS (6)
  1. EXJADE [Suspect]
     Dosage: 2000 MG, QD
     Route: 048
  2. AMITRIPTYLINE [Concomitant]
     Dosage: UNK
  3. PROZAC [Concomitant]
     Dosage: UNK
  4. PHENERGAN ^AVENTIS PHARMA^ [Concomitant]
     Dosage: UNK
  5. AMBIEN [Concomitant]
     Dosage: UNK
  6. TEMAZEPAM [Concomitant]
     Dosage: UNK

REACTIONS (4)
  - HEADACHE [None]
  - INFLUENZA [None]
  - SICKLE CELL ANAEMIA WITH CRISIS [None]
  - WEIGHT DECREASED [None]
